FAERS Safety Report 10053073 (Version 1)
Quarter: 2014Q2

REPORT INFORMATION
  Report Type: Spontaneous
  Country: US (occurrence: US)
  Receive Date: 20140402
  Receipt Date: 20140402
  Transmission Date: 20141212
  Serious: No
  Sender: FDA-Public Use
  Company Number: US-TEVA-471979USA

PATIENT
  Age: 46 Year
  Sex: Female
  Weight: 122.58 kg

DRUGS (10)
  1. NUVIGIL [Suspect]
     Indication: CHRONIC FATIGUE SYNDROME
     Route: 048
     Dates: start: 201310
  2. AVINZA [Concomitant]
  3. CYMBALTA [Concomitant]
  4. ASPIRIN [Concomitant]
  5. TOPAMAX [Concomitant]
  6. K-LOR [Concomitant]
  7. METFORMIN [Concomitant]
  8. LEVOTHYROXINE [Concomitant]
  9. HYDROCHLOROTHIAZIDE [Concomitant]
  10. DULCOLAX [Concomitant]

REACTIONS (5)
  - Pruritus [Unknown]
  - Dry skin [Unknown]
  - Blister [Unknown]
  - Drug dose omission [Unknown]
  - Blood glucose decreased [Unknown]
